FAERS Safety Report 14561550 (Version 1)
Quarter: 2018Q1

REPORT INFORMATION
  Report Type: Spontaneous
  Country: US (occurrence: US)
  Receive Date: 20180222
  Receipt Date: 20180222
  Transmission Date: 20180509
  Serious: No
  Sender: FDA-Public Use
  Company Number: US-VERTEX PHARMACEUTICALS-2018-001289

PATIENT
  Sex: Female

DRUGS (3)
  1. ORKAMBI [Suspect]
     Active Substance: IVACAFTOR\LUMACAFTOR
     Indication: CYSTIC FIBROSIS
     Dosage: 200/125 MG TABLETS, BID
     Route: 048
     Dates: start: 201507
  2. BETHKIS [Suspect]
     Active Substance: TOBRAMYCIN
     Indication: PRODUCT USED FOR UNKNOWN INDICATION
     Route: 065
  3. TOBRAMYCIN. [Concomitant]
     Active Substance: TOBRAMYCIN

REACTIONS (1)
  - Tinnitus [Not Recovered/Not Resolved]
